FAERS Safety Report 8372838-X (Version None)
Quarter: 2012Q2

REPORT INFORMATION
  Report Type: 
  Country: None (occurrence: None)
  Receive Date: 20120521
  Receipt Date: 20120518
  Transmission Date: 20120825
  Serious: Yes (Other)
  Sender: FDA-Public Use
  Company Number: US-PFIZER INC-2012121445

PATIENT
  Sex: Female
  Weight: 61.2 kg

DRUGS (4)
  1. SYNTHROID [Concomitant]
     Indication: AUTOIMMUNE THYROIDITIS
     Dosage: 0.125 UG, 1X/DAY
  2. PRISTIQ [Suspect]
     Indication: DEPRESSION
     Dosage: 100 MG, 1X/DAY
     Dates: start: 20100701
  3. PRISTIQ [Suspect]
     Dosage: 200 MG, 1X/DAY
  4. LAMICTAL [Concomitant]
     Indication: DEPRESSION
     Dosage: 175 MG, 1X/DAY

REACTIONS (1)
  - BREAST CANCER FEMALE [None]
